FAERS Safety Report 13463543 (Version 1)
Quarter: 2017Q2

REPORT INFORMATION
  Report Type: Spontaneous
  Country: US (occurrence: US)
  Receive Date: 20170420
  Receipt Date: 20170420
  Transmission Date: 20170830
  Serious: No
  Sender: FDA-Public Use
  Company Number: US-PFIZER INC-3197819

PATIENT
  Age: 27 Year
  Sex: Female
  Weight: 55.79 kg

DRUGS (1)
  1. LIDOCAINE HCL [Suspect]
     Active Substance: LIDOCAINE HYDROCHLORIDE
     Indication: NAIL OPERATION
     Dosage: UNK

REACTIONS (3)
  - Exposure via eye contact [Recovered/Resolved]
  - Occupational exposure to product [Recovered/Resolved]
  - Product closure issue [Recovered/Resolved]

NARRATIVE: CASE EVENT DATE: 20160301
